APPROVED DRUG PRODUCT: EPINASTINE HYDROCHLORIDE
Active Ingredient: EPINASTINE HYDROCHLORIDE
Strength: 0.05%
Dosage Form/Route: SOLUTION/DROPS;OPHTHALMIC
Application: A203384 | Product #001
Applicant: CHARTWELL RX SCIENCES LLC
Approved: Dec 7, 2016 | RLD: No | RS: No | Type: DISCN